FAERS Safety Report 8106812-5 (Version None)
Quarter: 2011Q4

REPORT INFORMATION
  Report Type: 
  Country: None (occurrence: None)
  Receive Date: 20111227
  Receipt Date: 20110922
  Transmission Date: 20120403
  Serious: Yes (Other)
  Sender: FDA-Public Use
  Company Number: PHHY2011US68617

PATIENT
  Age: 62 Year
  Sex: Female

DRUGS (9)
  1. BACLOFEN [Concomitant]
  2. FAMPRIDINE (FAMPRIDINE) [Concomitant]
  3. PROVIGIL [Concomitant]
  4. SANCTURA [Concomitant]
  5. EFEXOR XR (VENLAFAXINE) [Concomitant]
  6. GILENYA [Suspect]
     Dosage: 0.5 MG, QD, ORAL
     Route: 048
     Dates: start: 20110427, end: 20110727
  7. VITAMIN D [Concomitant]
  8. BONIVA [Concomitant]
  9. FISH OIL (FISH OIL) [Concomitant]

REACTIONS (3)
  - MACULAR OEDEMA [None]
  - VISION BLURRED [None]
  - VISUAL ACUITY REDUCED [None]
